FAERS Safety Report 5422462-3 (Version None)
Quarter: 2007Q3

REPORT INFORMATION
  Report Type: 
  Country: None (occurrence: None)
  Receive Date: 20070822
  Receipt Date: 20070821
  Transmission Date: 20080115
  Serious: Yes (Congenital Anomaly)
  Sender: FDA-Public Use
  Company Number: US-BRISTOL-MYERS SQUIBB COMPANY-13883715

PATIENT

DRUGS (1)
  1. ABILIFY [Suspect]

REACTIONS (2)
  - KIDNEY MALFORMATION [None]
  - PREGNANCY [None]
